FAERS Safety Report 24711562 (Version 1)
Quarter: 2024Q4

REPORT INFORMATION
  Report Type: Spontaneous
  Country: FR (occurrence: FR)
  Receive Date: 20241209
  Receipt Date: 20241209
  Transmission Date: 20250115
  Serious: Yes (Other)
  Sender: BAYER HEALTHCARE PHARMACEUTICALS INC.
  Company Number: None

PATIENT
  Age: 58 Year
  Sex: Female

DRUGS (1)
  1. MIRENA [Suspect]
     Active Substance: LEVONORGESTREL
     Indication: Intrauterine contraception
     Dosage: 20?G/DAY
     Route: 015

REACTIONS (1)
  - Meningioma [Not Recovered/Not Resolved]

NARRATIVE: CASE EVENT DATE: 20241104
